FAERS Safety Report 9069403 (Version 1)
Quarter: 2013Q1

REPORT INFORMATION
  Report Type: Spontaneous
  Country: CY (occurrence: CY)
  Receive Date: 20130215
  Receipt Date: 20130215
  Transmission Date: 20140127
  Serious: Yes (Other)
  Sender: FDA-Public Use
  Company Number: CY-009507513-1302CYP005001

PATIENT
  Age: 47 Year
  Sex: Male

DRUGS (2)
  1. REBETOL [Suspect]
     Dosage: 600MG-400, UNK
     Route: 048
     Dates: start: 20121120
  2. PEGINTRON [Suspect]
     Dosage: UNK

REACTIONS (1)
  - Pulmonary embolism [Recovered/Resolved]
